FAERS Safety Report 5446059-4 (Version None)
Quarter: 2007Q3

REPORT INFORMATION
  Report Type: 
  Country: None (occurrence: None)
  Receive Date: 20070907
  Receipt Date: 20070829
  Transmission Date: 20080115
  Serious: Yes (Hospitalization)
  Sender: FDA-Public Use
  Company Number: FR-JNJFOC-20070806118

PATIENT
  Age: 56 Year
  Sex: Male

DRUGS (3)
  1. REMICADE [Suspect]
     Route: 042
  2. REMICADE [Suspect]
     Route: 042
  3. REMICADE [Suspect]
     Indication: PSORIASIS
     Route: 042

REACTIONS (5)
  - COORDINATION ABNORMAL [None]
  - DIPLOPIA [None]
  - IIIRD NERVE PARALYSIS [None]
  - LEFT VENTRICULAR HYPERTROPHY [None]
  - NYSTAGMUS [None]
